FAERS Safety Report 13342385 (Version 3)
Quarter: 2017Q3

REPORT INFORMATION
  Report Type: Spontaneous
  Country: US (occurrence: US)
  Receive Date: 20170316
  Receipt Date: 20170712
  Transmission Date: 20171127
  Serious: No
  Sender: FDA-Public Use
  Company Number: PHEH2017US007880

PATIENT
  Sex: Female
  Weight: 57.6 kg

DRUGS (2)
  1. ZOFRAN [Suspect]
     Active Substance: ONDANSETRON HYDROCHLORIDE
     Indication: PRODUCT USED FOR UNKNOWN INDICATION
     Route: 042
  2. ZOFRAN [Suspect]
     Active Substance: ONDANSETRON HYDROCHLORIDE
     Indication: VOMITING IN PREGNANCY
     Dosage: 08 MG, UNK
     Route: 048
     Dates: start: 20060109, end: 20060806

REACTIONS (13)
  - Decreased appetite [Unknown]
  - Anxiety [Unknown]
  - Anogenital warts [Unknown]
  - Mood altered [Unknown]
  - Depression [Unknown]
  - Lethargy [Unknown]
  - Constipation [Unknown]
  - Product use in unapproved indication [Unknown]
  - Maternal exposure during pregnancy [Unknown]
  - Emotional distress [Unknown]
  - Injury [Unknown]
  - Vaginal infection [Unknown]
  - Weight decreased [Unknown]
